FAERS Safety Report 8383060-5 (Version None)
Quarter: 2012Q2

REPORT INFORMATION
  Report Type: 
  Country: None (occurrence: None)
  Receive Date: 20120522
  Receipt Date: 20120510
  Transmission Date: 20120825
  Serious: Yes (Death)
  Sender: FDA-Public Use
  Company Number: DKLU1079596

PATIENT
  Age: 6 Year
  Sex: Female

DRUGS (2)
  1. SABRIL [Suspect]
     Indication: EPILEPSY
     Dosage: 10 ML MILLILITRE(S), 2 IN 1 D, ORAL
     Route: 048
     Dates: start: 20091026
  2. SABRIL [Suspect]
     Indication: COMPLEX PARTIAL SEIZURES
     Dosage: 10 ML MILLILITRE(S), 2 IN 1 D, ORAL
     Route: 048
     Dates: start: 20091026

REACTIONS (1)
  - EYE OPERATION [None]
